FAERS Safety Report 18793627 (Version 1)
Quarter: 2021Q1

REPORT INFORMATION
  Report Type: Report from Study
  Country: AE (occurrence: AE)
  Receive Date: 20210127
  Receipt Date: 20210127
  Transmission Date: 20210419
  Serious: Yes (Hospitalization, Other)
  Sender: FDA-Public Use
  Company Number: AE-SA-2020SA325591

PATIENT
  Age: 1 Year
  Sex: Male
  Weight: 11.9 kg

DRUGS (7)
  1. EFTRENONACOG ALFA [Suspect]
     Active Substance: EFTRENONACOG ALFA
     Dosage: 500 IU, Q10D
     Route: 042
  2. EFTRENONACOG ALFA [Suspect]
     Active Substance: EFTRENONACOG ALFA
     Dosage: 500 IU, QW
     Route: 042
  3. EFTRENONACOG ALFA [Suspect]
     Active Substance: EFTRENONACOG ALFA
     Indication: FACTOR IX DEFICIENCY
     Dosage: 500 IU, QOW
     Route: 042
  4. FRESH FROZEN PLASMA [Concomitant]
     Active Substance: HUMAN PLASMA
     Dosage: UNK
     Dates: start: 201911
  5. EFTRENONACOG ALFA [Suspect]
     Active Substance: EFTRENONACOG ALFA
     Indication: FACTOR IX DEFICIENCY
     Dosage: 500 IU, QOW
     Route: 042
  6. EFTRENONACOG ALFA [Suspect]
     Active Substance: EFTRENONACOG ALFA
     Dosage: 500 IU, Q10D
     Route: 042
  7. EFTRENONACOG ALFA [Suspect]
     Active Substance: EFTRENONACOG ALFA
     Dosage: 500 IU, QW
     Route: 042

REACTIONS (10)
  - Urticaria [Not Recovered/Not Resolved]
  - Haematoma [Not Recovered/Not Resolved]
  - Poor venous access [Unknown]
  - Joint swelling [Recovering/Resolving]
  - Peripheral swelling [Unknown]
  - Haemorrhage [Not Recovered/Not Resolved]
  - Drug hypersensitivity [Recovering/Resolving]
  - Factor IX inhibition [Not Recovered/Not Resolved]
  - Haemarthrosis [Not Recovered/Not Resolved]
  - Injection site bruising [Unknown]

NARRATIVE: CASE EVENT DATE: 2020
